FAERS Safety Report 5932695-5 (Version None)
Quarter: 2008Q4

REPORT INFORMATION
  Report Type: 
  Country: None (occurrence: None)
  Receive Date: 20081023
  Receipt Date: 20081008
  Transmission Date: 20090506
  Serious: Yes (Death, Life-Threatening)
  Sender: FDA-Public Use
  Company Number: 2008002125

PATIENT
  Age: 64 Year
  Sex: Female

DRUGS (2)
  1. TARCEVA [Suspect]
     Indication: LUNG NEOPLASM MALIGNANT
     Dosage: (10 MG, QD), ORAL
     Route: 048
     Dates: start: 20080717, end: 20080804
  2. STEROID NOS [Suspect]
     Dosage: (4 MG, QD), ORAL
     Route: 048
     Dates: start: 20080713, end: 20080808

REACTIONS (6)
  - ABDOMINAL PAIN [None]
  - DEPRESSED LEVEL OF CONSCIOUSNESS [None]
  - LACTIC ACIDOSIS [None]
  - PERITONITIS [None]
  - PNEUMATOSIS INTESTINALIS [None]
  - SHOCK [None]
